FAERS Safety Report 18513052 (Version 8)
Quarter: 2021Q1

REPORT INFORMATION
  Report Type: Spontaneous
  Country: US (occurrence: US)
  Receive Date: 20201117
  Receipt Date: 20210126
  Transmission Date: 20210419
  Serious: No
  Sender: FDA-Public Use
  Company Number: US-PFIZER INC-2020449859

PATIENT
  Age: 56 Year
  Sex: Female

DRUGS (4)
  1. IBRANCE [Suspect]
     Active Substance: PALBOCICLIB
     Dosage: 125 MG
     Dates: start: 20201119
  2. IBRANCE [Suspect]
     Active Substance: PALBOCICLIB
     Dosage: 125 MG
     Dates: start: 20201030, end: 2020
  3. IBRANCE [Suspect]
     Active Substance: PALBOCICLIB
     Dosage: 125 MG
     Dates: start: 20201102
  4. IBRANCE [Suspect]
     Active Substance: PALBOCICLIB
     Dosage: 125 MG
     Dates: start: 20201006, end: 202010

REACTIONS (11)
  - Nausea [Unknown]
  - Alopecia [Not Recovered/Not Resolved]
  - Constipation [Not Recovered/Not Resolved]
  - Pseudomonas test positive [Unknown]
  - Taste disorder [Not Recovered/Not Resolved]
  - Parosmia [Unknown]
  - Fatigue [Not Recovered/Not Resolved]
  - Impaired healing [Unknown]
  - Erythema [Unknown]
  - Wound [Unknown]
  - Infection [Unknown]

NARRATIVE: CASE EVENT DATE: 2020
